FAERS Safety Report 23178727 (Version 1)
Quarter: 2023Q4

REPORT INFORMATION
  Report Type: Spontaneous
  Country: US (occurrence: US)
  Receive Date: 20231113
  Receipt Date: 20231113
  Transmission Date: 20240109
  Serious: Yes (Other)
  Sender: FDA-Public Use
  Company Number: US-BAUSCHBL-2023BNL011231

PATIENT
  Sex: Male

DRUGS (1)
  1. ERYTHROMYCIN [Suspect]
     Active Substance: ERYTHROMYCIN
     Indication: Eye abrasion
     Dosage: LEFT EYE EVERY TWO HOURS WHILE AWAKE.  RIGHT EYE ONCE AT NIGHT
     Route: 047

REACTIONS (1)
  - Pseudomonas infection [Unknown]
